FAERS Safety Report 5476859-6 (Version None)
Quarter: 2007Q4

REPORT INFORMATION
  Report Type: 
  Country: None (occurrence: None)
  Receive Date: 20071003
  Receipt Date: 20071003
  Transmission Date: 20080405
  Serious: Yes (Death)
  Sender: FDA-Public Use
  Company Number: None

PATIENT
  Age: 36 Year
  Sex: Male
  Weight: 75.2971 kg

DRUGS (3)
  1. SUTENT [Suspect]
     Indication: METASTATIC RENAL CELL CARCINOMA
     Dosage: 50MG DAILY FOR 28 DAYS WITH REST FOR 14 DAYS ORALLY
     Route: 048
     Dates: start: 20070827, end: 20070908
  2. ALLOPURINOL [Concomitant]
  3. REMERON [Concomitant]

REACTIONS (5)
  - FALL [None]
  - FATIGUE [None]
  - GAIT DISTURBANCE [None]
  - POSTURE ABNORMAL [None]
  - SOMNOLENCE [None]
